FAERS Safety Report 5654367-7 (Version None)
Quarter: 2008Q1

REPORT INFORMATION
  Report Type: 
  Country: None (occurrence: None)
  Receive Date: 20080305
  Receipt Date: 20080220
  Transmission Date: 20080703
  Serious: Yes (Hospitalization, Other)
  Sender: FDA-Public Use
  Company Number: 231769J08USA

PATIENT
  Age: 57 Year
  Sex: Female

DRUGS (2)
  1. REBIF [Suspect]
     Indication: MULTIPLE SCLEROSIS
     Dosage: 44 MCG, 3 IN 1 WEEKS, SUBCUTANEOUS
     Route: 058
     Dates: start: 20031117, end: 20070401
  2. PROVIGIL [Concomitant]

REACTIONS (4)
  - ANAEMIA [None]
  - COLON CANCER METASTATIC [None]
  - METASTASES TO LIVER [None]
  - METASTASES TO LYMPH NODES [None]
